FAERS Safety Report 10738792 (Version 2)
Quarter: 2015Q2

REPORT INFORMATION
  Report Type: Spontaneous
  Country: IL (occurrence: IL)
  Receive Date: 20150126
  Receipt Date: 20150406
  Transmission Date: 20150821
  Serious: Yes (Hospitalization)
  Sender: FDA-Public Use
  Company Number: US-ASTRAZENECA-2015SE06959

PATIENT
  Sex: Male

DRUGS (1)
  1. SYNAGIS [Suspect]
     Active Substance: PALIVIZUMAB
     Indication: ANTIVIRAL PROPHYLAXIS
     Route: 030
     Dates: start: 20141222

REACTIONS (6)
  - Hypothermia [Unknown]
  - Atelectasis [Unknown]
  - Respiratory distress [Recovering/Resolving]
  - Inguinal hernia [Unknown]
  - Bronchiolitis [Unknown]
  - Respiratory syncytial virus test positive [Recovering/Resolving]
